FAERS Safety Report 8399404 (Version 4)
Quarter: 2013Q3

REPORT INFORMATION
  Report Type: Report from Study
  Country: HU (occurrence: HU)
  Receive Date: 20120210
  Receipt Date: 20130814
  Transmission Date: 20140515
  Serious: Yes (Death, Hospitalization)
  Sender: FDA-Public Use
  Company Number: HU-BRISTOL-MYERS SQUIBB COMPANY-16381667

PATIENT
  Age: 67 Year
  Sex: Male
  Weight: 39 kg

DRUGS (7)
  1. CISPLATIN [Suspect]
     Indication: NON-SMALL CELL LUNG CANCER
     Dosage: LAST DOSE ON 02NOV2010,3RD INFUSION
     Dates: start: 20100921
  2. NECITUMUMAB [Suspect]
     Indication: NON-SMALL CELL LUNG CANCER
  3. GEMZAR [Suspect]
     Indication: NON-SMALL CELL LUNG CANCER
     Dosage: LAST INF(6TH INF) ON 09NOV2010
     Dates: start: 20100921
  4. CONTRAMAL [Concomitant]
  5. SPIRIVA [Concomitant]
  6. FURON [Concomitant]
     Dates: start: 20101101, end: 20101117
  7. KALDYUM [Concomitant]
     Dates: start: 20101101

REACTIONS (2)
  - Cardiac failure [Fatal]
  - General physical health deterioration [Unknown]
